FAERS Safety Report 16631377 (Version 2)
Quarter: 2019Q3

REPORT INFORMATION
  Report Type: Spontaneous
  Country: PL (occurrence: PL)
  Receive Date: 20190725
  Receipt Date: 20190731
  Transmission Date: 20191004
  Serious: Yes (Death, Life-Threatening)
  Sender: FDA-Public Use
  Company Number: PL-MYLANLABS-2019M1069748

PATIENT
  Age: 67 Year
  Sex: Female
  Weight: 70 kg

DRUGS (22)
  1. GENSULIN R [Suspect]
     Active Substance: INSULIN HUMAN
     Dosage: 12.5 INTERNATIONAL UNIT, QD
     Route: 042
     Dates: start: 20181123, end: 20181123
  2. GENSULIN R [Suspect]
     Active Substance: INSULIN HUMAN
     Dosage: 15 INTERNATIONAL UNIT, QD
     Route: 042
     Dates: start: 20181125, end: 20181125
  3. LEVONOR                            /00127502/ [Suspect]
     Active Substance: NOREPINEPHRINE BITARTRATE
     Indication: PRODUCT USED FOR UNKNOWN INDICATION
     Dosage: UNK
     Route: 065
  4. GENSULIN R [Suspect]
     Active Substance: INSULIN HUMAN
     Dosage: 15 INTERNATIONAL UNIT, QD
     Route: 042
     Dates: start: 20181117, end: 20181117
  5. GLUCOSE [Suspect]
     Active Substance: DEXTROSE
     Indication: PRODUCT USED FOR UNKNOWN INDICATION
     Dosage: 500 MILLILITER, Q2D
     Route: 042
     Dates: start: 20181116, end: 20181116
  6. GENSULIN R [Suspect]
     Active Substance: INSULIN HUMAN
     Indication: DIABETES MELLITUS
     Dosage: 12.5 INTERNATIONAL UNIT, QD
     Route: 042
     Dates: start: 20181116, end: 20181116
  7. GENSULIN R [Suspect]
     Active Substance: INSULIN HUMAN
     Dosage: 12.5 INTERNATIONAL UNIT, QD
     Route: 042
     Dates: start: 20181118, end: 20181118
  8. GLUCOSE [Suspect]
     Active Substance: DEXTROSE
     Dosage: 500 MILLILITER, Q3D
     Route: 042
     Dates: start: 20181117, end: 20181117
  9. IMIPENEM [Suspect]
     Active Substance: IMIPENEM
     Indication: NOSOCOMIAL INFECTION
     Dosage: UNK
     Route: 065
  10. VANCOMYCIN [Suspect]
     Active Substance: VANCOMYCIN
     Indication: NOSOCOMIAL INFECTION
     Dosage: UNK
     Route: 065
  11. GENSULIN R [Suspect]
     Active Substance: INSULIN HUMAN
     Dosage: 15 INTERNATIONAL UNIT, QD
     Route: 042
     Dates: start: 20181119, end: 20181119
  12. GENSULIN R [Suspect]
     Active Substance: INSULIN HUMAN
     Dosage: 24.5 INTERNATIONAL UNIT, QD
     Route: 042
     Dates: start: 20181120, end: 20181120
  13. GENSULIN R [Suspect]
     Active Substance: INSULIN HUMAN
     Dosage: 25 INTERNATIONAL UNIT, QD
     Route: 042
     Dates: start: 20181121, end: 20181121
  14. GENSULIN R [Suspect]
     Active Substance: INSULIN HUMAN
     Dosage: 1 INTERNATIONAL UNIT, QH,BETWEEN 2,7
     Route: 042
     Dates: start: 20181123, end: 20181123
  15. MORPHINE [Suspect]
     Active Substance: MORPHINE
     Indication: PRODUCT USED FOR UNKNOWN INDICATION
     Dosage: 145 MILLIGRAM, QD
     Route: 042
     Dates: start: 20181124, end: 20181124
  16. MEMOTROPIL [Suspect]
     Active Substance: PIRACETAM
     Indication: PRODUCT USED FOR UNKNOWN INDICATION
     Dosage: UNK
     Route: 065
  17. HEPA-MERZ                          /01390204/ [Suspect]
     Active Substance: ORNITHINE ASPARTATE
     Indication: PRODUCT USED FOR UNKNOWN INDICATION
     Dosage: UNK
     Route: 065
  18. DEXAVEN [Suspect]
     Active Substance: DEXAMETHASONE
     Indication: PRODUCT USED FOR UNKNOWN INDICATION
     Dosage: UNK
     Route: 065
  19. GENSULIN R [Suspect]
     Active Substance: INSULIN HUMAN
     Dosage: 20 INTERNATIONAL UNIT, QD
     Route: 042
     Dates: start: 20181122, end: 20181122
  20. GENSULIN R [Suspect]
     Active Substance: INSULIN HUMAN
     Dosage: 56 INTERNATIONAL UNIT, QD (2,7 AM TILL 7 PM 13 HOURS PLUS TWO TIMES 15 UNITS)
     Route: 042
     Dates: start: 20181124, end: 20181124
  21. GLUCOSE [Suspect]
     Active Substance: DEXTROSE
     Dosage: 500 MILLILITER, Q2D
     Route: 042
     Dates: start: 20181118, end: 20181125
  22. IPP                                /01263204/ [Suspect]
     Active Substance: PANTOPRAZOLE SODIUM
     Indication: PRODUCT USED FOR UNKNOWN INDICATION
     Dosage: UNK
     Route: 065

REACTIONS (12)
  - Blood pressure decreased [Fatal]
  - Loss of consciousness [Fatal]
  - Hyperkalaemia [Fatal]
  - Heart rate increased [Fatal]
  - Central nervous system injury [Fatal]
  - Chromaturia [Fatal]
  - Prescribed overdose [Fatal]
  - Hypoxia [Fatal]
  - Tachyarrhythmia [Fatal]
  - Acidosis [Fatal]
  - Hypoglycaemia [Fatal]
  - Hyperchloraemia [Fatal]

NARRATIVE: CASE EVENT DATE: 20181124
